FAERS Safety Report 18655945 (Version 1)
Quarter: 2020Q4

REPORT INFORMATION
  Report Type: Spontaneous
  Country: CN (occurrence: CN)
  Receive Date: 20201223
  Receipt Date: 20201223
  Transmission Date: 20210114
  Serious: Yes (Other)
  Sender: FDA-Public Use
  Company Number: CN-ASTRAZENECA-2020SF70457

PATIENT
  Age: 28246 Day
  Sex: Female
  Weight: 50 kg

DRUGS (10)
  1. FLUXUM [Suspect]
     Active Substance: PARNAPARIN SODIUM
     Indication: COAGULOPATHY
     Dosage: 4250 UNITS, ONCE EVERY DAY
     Route: 058
     Dates: start: 20201208, end: 20201209
  2. BRILINTA [Concomitant]
     Active Substance: TICAGRELOR
     Indication: PLATELET AGGREGATION TEST
     Route: 048
     Dates: start: 20201208, end: 20201210
  3. PANTOPRAZOLE SODIUM. [Concomitant]
     Active Substance: PANTOPRAZOLE SODIUM
     Indication: SPASMODIC DYSPHONIA
     Route: 048
     Dates: start: 20201207, end: 20201214
  4. ROSUVASTATIN CALCIUM. [Suspect]
     Active Substance: ROSUVASTATIN CALCIUM
     Indication: ARTERIOSCLEROSIS
     Route: 048
     Dates: start: 20201207, end: 20201207
  5. LIPITOR [Suspect]
     Active Substance: ATORVASTATIN CALCIUM
     Indication: ARTERIOSCLEROSIS
     Route: 048
     Dates: start: 20201208, end: 20201209
  6. ENOXAPARIN SODIUM. [Suspect]
     Active Substance: ENOXAPARIN SODIUM
     Indication: COAGULOPATHY
     Dosage: 4000 UNITS, ONCE EVERY DAY
     Route: 058
     Dates: start: 20201207, end: 20201207
  7. ASPIRIN. [Concomitant]
     Active Substance: ASPIRIN
     Indication: PLATELET AGGREGATION TEST
     Route: 048
     Dates: start: 20201207, end: 20201207
  8. PANTOPRAZOLE SODIUM. [Concomitant]
     Active Substance: PANTOPRAZOLE SODIUM
     Indication: DYSPEPSIA
     Route: 048
     Dates: start: 20201207, end: 20201214
  9. ASPIRIN. [Concomitant]
     Active Substance: ASPIRIN
     Indication: PLATELET AGGREGATION TEST
     Route: 048
     Dates: start: 20201208, end: 20201214
  10. BRILINTA [Concomitant]
     Active Substance: TICAGRELOR
     Indication: PLATELET AGGREGATION TEST
     Route: 048
     Dates: start: 20201207, end: 20201207

REACTIONS (1)
  - Liver injury [Recovering/Resolving]

NARRATIVE: CASE EVENT DATE: 20201209
